FAERS Safety Report 24741645 (Version 1)
Quarter: 2024Q4

REPORT INFORMATION
  Report Type: Spontaneous
  Country: KR (occurrence: KR)
  Receive Date: 20241217
  Receipt Date: 20241217
  Transmission Date: 20250115
  Serious: Yes (Other)
  Sender: ALKEM
  Company Number: KR-ALKEM LABORATORIES LIMITED-KR-ALKEM-2024-26024

PATIENT
  Age: 8 Year
  Sex: Female

DRUGS (2)
  1. EVEROLIMUS [Suspect]
     Active Substance: EVEROLIMUS
     Indication: Seizure
     Dosage: 4.5 MILLIGRAM/SQ. METER, QD (DISPERSIBLE TABLETS)
     Route: 065
  2. EVEROLIMUS [Suspect]
     Active Substance: EVEROLIMUS
     Indication: Cortical dysplasia
     Dosage: 6 MILLIGRAM (MAXIMUM DOSE)
     Route: 065

REACTIONS (1)
  - Mucosal inflammation [Unknown]
